FAERS Safety Report 23598973 (Version 1)
Quarter: 2024Q1

REPORT INFORMATION
  Report Type: Spontaneous
  Country: BD (occurrence: BD)
  Receive Date: 20240306
  Receipt Date: 20240306
  Transmission Date: 20240410
  Serious: Yes (Other)
  Sender: FDA-Public Use
  Company Number: BD-002147023-NVSC2024BD043174

PATIENT
  Age: 55 Year

DRUGS (2)
  1. LUCENTIS [Suspect]
     Active Substance: RANIBIZUMAB
     Indication: Diabetic retinal oedema
     Dosage: 10 MG, QMO
     Route: 047
     Dates: start: 20240223, end: 20240223
  2. ASPIRIN [Suspect]
     Active Substance: ASPIRIN
     Indication: Anticoagulant therapy
     Dosage: UNK
     Route: 065

REACTIONS (1)
  - Vitreous haemorrhage [Recovering/Resolving]

NARRATIVE: CASE EVENT DATE: 20240224
